FAERS Safety Report 24430360 (Version 7)
Quarter: 2025Q1

REPORT INFORMATION
  Report Type: Spontaneous
  Country: US (occurrence: US)
  Receive Date: 20241013
  Receipt Date: 20250301
  Transmission Date: 20250409
  Serious: No
  Sender: SANOFI AVENTIS
  Company Number: US-SA-2024SA291910

PATIENT
  Age: 87 Year
  Sex: Female

DRUGS (7)
  1. DUPIXENT [Suspect]
     Active Substance: DUPILUMAB
     Indication: Dermatitis atopic
     Route: 058
     Dates: start: 20240904, end: 20240904
  2. DUPIXENT [Suspect]
     Active Substance: DUPILUMAB
     Indication: Eczema herpeticum
     Dosage: 300 MG, QOW
     Route: 058
     Dates: start: 20240918
  3. DUPIXENT [Suspect]
     Active Substance: DUPILUMAB
     Indication: Herpes dermatitis
  4. DUPIXENT [Suspect]
     Active Substance: DUPILUMAB
     Indication: Dermatitis atopic
     Dosage: 300 MG, Q4W
     Route: 058
     Dates: start: 20241002, end: 2024
  5. DUPIXENT [Suspect]
     Active Substance: DUPILUMAB
     Indication: Eczema herpeticum
     Dosage: 300 MG, QOW
     Route: 058
     Dates: start: 2024
  6. DUPIXENT [Suspect]
     Active Substance: DUPILUMAB
     Indication: Herpes dermatitis
  7. NUZYRA [Suspect]
     Active Substance: OMADACYCLINE

REACTIONS (10)
  - Condition aggravated [Recovered/Resolved]
  - Frequent bowel movements [Unknown]
  - Abdominal discomfort [Recovered/Resolved]
  - Vomiting [Recovered/Resolved]
  - Diarrhoea [Recovered/Resolved]
  - Pruritus [Not Recovered/Not Resolved]
  - Injection site pain [Unknown]
  - Rash [Unknown]
  - Off label use [Unknown]
  - Product use in unapproved indication [Unknown]

NARRATIVE: CASE EVENT DATE: 20240101
